FAERS Safety Report 17039853 (Version 1)
Quarter: 2019Q4

REPORT INFORMATION
  Report Type: Report from Study
  Country: None (occurrence: CA)
  Receive Date: 20191116
  Receipt Date: 20191116
  Transmission Date: 20200122
  Serious: Yes (Hospitalization)
  Sender: FDA-Public Use
  Company Number: CA-ABBVIE-19K-028-3000341-00

PATIENT
  Sex: Female

DRUGS (1)
  1. HUMIRA [Suspect]
     Active Substance: ADALIMUMAB
     Indication: CROHN^S DISEASE
     Route: 058
     Dates: start: 20110822

REACTIONS (12)
  - Aphthous ulcer [Recovered/Resolved]
  - Arthralgia [Not Recovered/Not Resolved]
  - Anorectal discomfort [Recovering/Resolving]
  - Blood potassium decreased [Unknown]
  - Vulvovaginal discomfort [Recovering/Resolving]
  - Hypophagia [Unknown]
  - Stoma creation [Unknown]
  - Renal impairment [Unknown]
  - Oral discomfort [Recovered/Resolved]
  - Infection [Unknown]
  - Blood magnesium decreased [Unknown]
  - Injection site pain [Not Recovered/Not Resolved]

NARRATIVE: CASE EVENT DATE: 2019
